FAERS Safety Report 4389267-6 (Version None)
Quarter: 2004Q2

REPORT INFORMATION
  Report Type: 
  Country: None (occurrence: None)
  Receive Date: 20040628
  Receipt Date: 20040616
  Transmission Date: 20050107
  Serious: Yes (Hospitalization)
  Sender: FDA-Public Use
  Company Number: 2004040912

PATIENT
  Age: 40 Year
  Sex: Female
  Weight: 70 kg

DRUGS (2)
  1. SERTRALINE HCL [Suspect]
     Indication: POSTPARTUM DEPRESSION
     Dosage: 50 MG (50 MG, 1 IN 1 D), ORAL
     Route: 048
     Dates: start: 20040514, end: 20040516
  2. IMIPRAMINE [Concomitant]

REACTIONS (1)
  - ANGIONEUROTIC OEDEMA [None]
